FAERS Safety Report 5090895-3 (Version None)
Quarter: 2006Q3

REPORT INFORMATION
  Report Type: 
  Country: None (occurrence: None)
  Receive Date: 20060823
  Receipt Date: 20050807
  Transmission Date: 20061208
  Serious: Yes (Other)
  Sender: FDA-Public Use
  Company Number: ENT 2006-0109

PATIENT
  Sex: Female

DRUGS (2)
  1. COMTAN [Suspect]
     Indication: PARKINSON'S DISEASE
     Dosage: 200 MG; 100 MG
  2. SINEMET [Concomitant]

REACTIONS (1)
  - HALLUCINATION [None]
